FAERS Safety Report 9539771 (Version 1)
Quarter: 2013Q2

REPORT INFORMATION
  Report Type: Spontaneous
  Country: US (occurrence: None)
  Receive Date: 20130521
  Receipt Date: 20130521
  Transmission Date: 20140414
  Serious: No
  Sender: FDA-Public Use
  Company Number: 1000044077

PATIENT
  Age: 68 Year
  Sex: Male

DRUGS (3)
  1. TUDORZA PRESSAIR [Suspect]
     Indication: PULMONARY SARCOIDOSIS
     Route: 048
     Dates: start: 201303
  2. SYMBICORT (BUDESONIDE W/FORMOTEROL FUMARATE) (BUDESONIDE W/FORMOTEROL FUMARATE)? [Concomitant]
  3. EXFORGE (DIOVAN AMLO) (DIOVAN AMLO) [Concomitant]

REACTIONS (3)
  - Off label use [None]
  - Headache [None]
  - Cough [None]
